FAERS Safety Report 8512083-8 (Version None)
Quarter: 2012Q2

REPORT INFORMATION
  Report Type: 
  Country: None (occurrence: None)
  Receive Date: 20120405
  Receipt Date: 20080825
  Transmission Date: 20120825
  Serious: Yes (Other)
  Sender: FDA-Public Use
  Company Number: PHEH2008US06013

PATIENT
  Sex: Female

DRUGS (1)
  1. RECLAST [Suspect]
     Indication: OSTEOPOROSIS
     Dates: start: 20080101

REACTIONS (9)
  - FIBROMYALGIA [None]
  - PAIN IN JAW [None]
  - TOOTHACHE [None]
  - MYALGIA [None]
  - PAIN [None]
  - OSTEONECROSIS [None]
  - BONE PAIN [None]
  - ASTHENIA [None]
  - ARTHRALGIA [None]
